FAERS Safety Report 7214821-3 (Version None)
Quarter: 2011Q1

REPORT INFORMATION
  Report Type: 
  Country: None (occurrence: None)
  Receive Date: 20110107
  Receipt Date: 20100316
  Transmission Date: 20110831
  Serious: No
  Sender: FDA-Public Use
  Company Number: A0850448A

PATIENT
  Age: 57 Year
  Sex: Female

DRUGS (4)
  1. LOVAZA [Suspect]
     Dosage: 3CAP PER DAY
     Route: 048
     Dates: start: 20090301
  2. MULTI-VITAMIN [Concomitant]
  3. ESTROGEN CREAM [Concomitant]
  4. CALCIUM + D [Concomitant]

REACTIONS (3)
  - FLATULENCE [None]
  - CHEST DISCOMFORT [None]
  - DRY MOUTH [None]
